FAERS Safety Report 25015412 (Version 1)
Quarter: 2025Q1

REPORT INFORMATION
  Report Type: Spontaneous
  Country: US (occurrence: US)
  Receive Date: 20250227
  Receipt Date: 20250227
  Transmission Date: 20250409
  Serious: No
  Sender: ELI LILLY AND COMPANY
  Company Number: US-ELI_LILLY_AND_COMPANY-US202502014848

PATIENT
  Age: 65 Year
  Sex: Female

DRUGS (7)
  1. EMGALITY [Suspect]
     Active Substance: GALCANEZUMAB-GNLM
     Indication: Migraine
     Route: 058
     Dates: start: 2024
  2. EMGALITY [Suspect]
     Active Substance: GALCANEZUMAB-GNLM
     Indication: Migraine
     Route: 058
     Dates: start: 2024
  3. EMGALITY [Suspect]
     Active Substance: GALCANEZUMAB-GNLM
     Route: 058
  4. EMGALITY [Suspect]
     Active Substance: GALCANEZUMAB-GNLM
     Route: 058
  5. TRILEPTAL [Concomitant]
     Active Substance: OXCARBAZEPINE
     Indication: Headache
     Route: 065
  6. RIZATRIPTAN [Concomitant]
     Active Substance: RIZATRIPTAN
     Indication: Headache
     Route: 065
  7. UBRELVY [Concomitant]
     Active Substance: UBROGEPANT
     Indication: Product used for unknown indication
     Route: 065

REACTIONS (4)
  - Drug dose omission by device [Unknown]
  - Injection site pain [Recovered/Resolved]
  - Injection site mass [Recovered/Resolved]
  - Injection site bruising [Recovered/Resolved]

NARRATIVE: CASE EVENT DATE: 20250218
